FAERS Safety Report 8574406-3 (Version None)
Quarter: 2012Q3

REPORT INFORMATION
  Report Type: 
  Country: None (occurrence: None)
  Receive Date: 20120806
  Receipt Date: 20120727
  Transmission Date: 20120928
  Serious: Yes (Other)
  Sender: FDA-Public Use
  Company Number: JP-PFIZER INC-2012176734

PATIENT
  Age: 66 Year
  Sex: Female

DRUGS (1)
  1. LYRICA [Suspect]
     Dosage: 25 MG IN THE MORNING AND 75 MG IN THE EVENING DAILY
     Route: 048
     Dates: start: 20120712

REACTIONS (2)
  - SUDDEN HEARING LOSS [None]
  - HYPERHIDROSIS [None]
